FAERS Safety Report 14193823 (Version 1)
Quarter: 2017Q4

REPORT INFORMATION
  Report Type: Spontaneous
  Country: RU (occurrence: RU)
  Receive Date: 20171115
  Receipt Date: 20171115
  Transmission Date: 20180321
  Serious: Yes (Other)
  Sender: FDA-Public Use
  Company Number: RU-ASTRAZENECA-2017SF15243

PATIENT
  Age: 53 Year
  Sex: Female
  Weight: 112 kg

DRUGS (4)
  1. FORXIGA [Suspect]
     Active Substance: DAPAGLIFLOZIN
     Indication: TYPE 2 DIABETES MELLITUS
     Route: 048
     Dates: start: 201704, end: 201707
  2. NOLIPREL [Concomitant]
  3. CORONAL [Concomitant]
  4. L-THYROXIN [Concomitant]
     Active Substance: LEVOTHYROXINE SODIUM

REACTIONS (2)
  - Seizure [Recovered/Resolved]
  - Fatigue [Recovered/Resolved]
